FAERS Safety Report 22650469 (Version 1)
Quarter: 2023Q2

REPORT INFORMATION
  Report Type: Spontaneous
  Country: US (occurrence: None)
  Receive Date: 20230627
  Receipt Date: 20230627
  Transmission Date: 20230721
  Serious: No
  Sender: FDA-Public Use
  Company Number: None

PATIENT
  Age: 51 Year
  Sex: Female
  Weight: 81 kg

DRUGS (6)
  1. AIMOVIG [Suspect]
     Active Substance: ERENUMAB-AOOE
     Indication: Migraine prophylaxis
     Dates: start: 20230419, end: 20230612
  2. Butalbutal [Concomitant]
  3. VITAMINS [Concomitant]
     Active Substance: VITAMINS
  4. MAGNESIUM [Concomitant]
     Active Substance: MAGNESIUM
  5. ZINC [Concomitant]
     Active Substance: ZINC
  6. ALLEGRA [Concomitant]
     Active Substance: FEXOFENADINE HYDROCHLORIDE

REACTIONS (1)
  - Dizziness [None]

NARRATIVE: CASE EVENT DATE: 20230419
